FAERS Safety Report 19978865 (Version 1)
Quarter: 2021Q4

REPORT INFORMATION
  Report Type: Spontaneous
  Country: US (occurrence: US)
  Receive Date: 20211019
  Receipt Date: 20211019
  Transmission Date: 20220304
  Serious: No
  Sender: FDA-Public Use
  Company Number: None

PATIENT
  Age: 80 Year
  Sex: Female
  Weight: 66.68 kg

DRUGS (3)
  1. MESALAMINE [Suspect]
     Active Substance: MESALAMINE
     Indication: Large intestine polyp
     Dosage: ?          QUANTITY:2 DF DOSAGE FORM;OTHER FREQUENCY:DAILY WITH BREAKFA;
     Route: 048
     Dates: start: 20000101, end: 20210913
  2. Women^s 50+ Advanced multiple vitamin [Concomitant]
  3. ASPIRIN [Concomitant]
     Active Substance: ASPIRIN

REACTIONS (17)
  - Blood calcium decreased [None]
  - Skin mass [None]
  - Vision blurred [None]
  - Dizziness [None]
  - Musculoskeletal stiffness [None]
  - Back pain [None]
  - Neuropathy peripheral [None]
  - Myalgia [None]
  - Nasal disorder [None]
  - Gluten sensitivity [None]
  - Lactose intolerance [None]
  - Hyperhidrosis [None]
  - Blood iron decreased [None]
  - Folate deficiency [None]
  - Calcium deficiency [None]
  - Vitamin D deficiency [None]
  - Large intestine polyp [None]
